FAERS Safety Report 10627463 (Version 1)
Quarter: 2014Q4

REPORT INFORMATION
  Report Type: Spontaneous
  Country: US (occurrence: US)
  Receive Date: 20141205
  Receipt Date: 20141205
  Transmission Date: 20150529
  Serious: No
  Sender: FDA-Public Use
  Company Number: US-009507513-1412USA002537

PATIENT
  Sex: Female

DRUGS (3)
  1. REBETOL [Suspect]
     Active Substance: RIBAVIRIN
     Indication: CHRONIC HEPATITIS C
     Dosage: UNK
     Route: 048
     Dates: start: 201202
  2. INCIVEK [Suspect]
     Active Substance: TELAPREVIR
     Indication: CHRONIC HEPATITIS C
     Dosage: UNK
     Dates: start: 201202
  3. INTERFERON NOS [Suspect]
     Active Substance: INTERFERON
     Indication: CHRONIC HEPATITIS C
     Dosage: UNK
     Dates: start: 201202

REACTIONS (4)
  - Hepatitis C [Unknown]
  - Rash [Unknown]
  - Pruritus [Unknown]
  - Fatigue [Unknown]

NARRATIVE: CASE EVENT DATE: 2012
